FAERS Safety Report 6575262-5 (Version None)
Quarter: 2010Q1

REPORT INFORMATION
  Report Type: 
  Country: None (occurrence: None)
  Receive Date: 20100209
  Receipt Date: 20100201
  Transmission Date: 20100710
  Serious: Yes (Hospitalization)
  Sender: FDA-Public Use
  Company Number: US-ROCHE-646359

PATIENT
  Sex: Female
  Weight: 57 kg

DRUGS (10)
  1. TRASTUZUMAB [Suspect]
     Dosage: TOTAL LOADING DOSE: 8 MG/KG; DOSAGE FORM: VIALS
     Route: 042
     Dates: start: 20090625
  2. TRASTUZUMAB [Suspect]
     Dosage: DOSE LEVEL: 6 MG/KG, LAST DOSE PRIOR TO SAE: 17 JULY 2009; PERMANENTLY DISCONTINUED, FORM:VIALS
     Route: 042
     Dates: start: 20090625, end: 20090723
  3. TRASTUZUMAB [Suspect]
     Dosage: DOSE LEVEL : 06 MG/KG,FORM:VIALS, LAST DOSE PRIOR TO SAE: 17 JULY 2009.
     Route: 042
     Dates: end: 20090807
  4. DOCETAXEL [Suspect]
     Dosage: DOSE LEVEL: 75 MG/M2, FORM: VIALS, LAST DOSE PRIOR TO SAE: 17 JULY 2009; PERMANENTLY DISCONTINUED
     Route: 042
     Dates: start: 20090625, end: 20090807
  5. CARBOPLATIN [Suspect]
     Dosage: DOSE REPORTED: 6 AUC, DOSAGE FORM: VIALS, LAST DOSE PRIOR TO SAE: 17 JULY 2009.
     Route: 042
     Dates: start: 20090625, end: 20090807
  6. AMLODIPINE [Concomitant]
     Dates: start: 20080226
  7. SIMVASTIN [Concomitant]
     Dates: start: 20080311
  8. NIACIN [Concomitant]
     Dates: start: 20090622
  9. PONSTEL [Concomitant]
     Dates: start: 20080226
  10. TYLENOL-500 [Concomitant]
     Dates: start: 20090722

REACTIONS (3)
  - ARTHRITIS INFECTIVE [None]
  - ENDOCARDITIS [None]
  - SEPSIS [None]
